FAERS Safety Report 16160099 (Version 1)
Quarter: 2019Q2

REPORT INFORMATION
  Report Type: Spontaneous
  Country: FR (occurrence: FR)
  Receive Date: 20190404
  Receipt Date: 20190404
  Transmission Date: 20190711
  Serious: Yes (Hospitalization)
  Sender: FDA-Public Use
  Company Number: FR-009507513-1903FRA012807

PATIENT
  Age: 38 Year
  Sex: Female

DRUGS (3)
  1. TERCIAN [Suspect]
     Active Substance: CYAMEMAZINE
     Indication: TOXICITY TO VARIOUS AGENTS
     Dosage: 920 MILLIGRAM, UNK
     Route: 048
     Dates: start: 20180527
  2. LANZOR [Suspect]
     Active Substance: LANSOPRAZOLE
     Indication: TOXICITY TO VARIOUS AGENTS
     Dosage: 3 DOSAGE FORM, UNK
     Route: 048
     Dates: start: 20180527
  3. MIRTAZAPINE. [Suspect]
     Active Substance: MIRTAZAPINE
     Indication: TOXICITY TO VARIOUS AGENTS
     Dosage: 210 MILLIGRAM, UNK
     Route: 048
     Dates: start: 20180527

REACTIONS (4)
  - Toxicity to various agents [Recovered/Resolved]
  - Ventricular extrasystoles [Recovered/Resolved]
  - Somnolence [Recovered/Resolved]
  - Vomiting [Recovered/Resolved]

NARRATIVE: CASE EVENT DATE: 20180527
